FAERS Safety Report 20809336 (Version 2)
Quarter: 2022Q2

REPORT INFORMATION
  Report Type: Report from Study
  Country: US (occurrence: US)
  Receive Date: 20220510
  Receipt Date: 20220525
  Transmission Date: 20220721
  Serious: Yes (Hospitalization, Other)
  Sender: FDA-Public Use
  Company Number: US-PFIZER INC-202200564568

PATIENT
  Age: 13 Year
  Sex: Female
  Weight: 76.1 kg

DRUGS (14)
  1. DOXORUBICIN HYDROCHLORIDE [Suspect]
     Active Substance: DOXORUBICIN HYDROCHLORIDE
     Indication: Acute lymphocytic leukaemia
     Dosage: 46 MG, DAYS 1, 8, 15
     Route: 042
     Dates: start: 20220315, end: 20220329
  2. DOXORUBICIN HYDROCHLORIDE [Suspect]
     Active Substance: DOXORUBICIN HYDROCHLORIDE
     Dosage: 46 MG, DAYS 1, 8, 15
     Route: 042
     Dates: start: 20220405
  3. VINCRISTINE SULFATE [Suspect]
     Active Substance: VINCRISTINE SULFATE
     Indication: Acute lymphocytic leukaemia
     Dosage: 2 MG, WHEN INDICATED
     Route: 042
     Dates: start: 20211102, end: 20220329
  4. VINCRISTINE SULFATE [Suspect]
     Active Substance: VINCRISTINE SULFATE
     Dosage: 2 MG, WHEN INDICATED
     Route: 042
     Dates: start: 20220405
  5. CYTARABINE [Suspect]
     Active Substance: CYTARABINE
     Indication: Acute lymphocytic leukaemia
     Dosage: 133 MG, AS DIRECTED
     Route: 058
     Dates: start: 20211019
  6. METHOTREXATE SODIUM [Suspect]
     Active Substance: METHOTREXATE SODIUM
     Indication: Acute lymphocytic leukaemia
     Dosage: 15 MG, AS INDICATED
     Route: 037
     Dates: start: 20211019
  7. METHOTREXATE SODIUM [Suspect]
     Active Substance: METHOTREXATE SODIUM
     Indication: Acute lymphocytic leukaemia
     Dosage: 8900 MG, OVER 24 HOURS WHEN INDICATED
     Route: 042
     Dates: start: 20220105
  8. RUXOLITINIB [Suspect]
     Active Substance: RUXOLITINIB
     Indication: Acute lymphocytic leukaemia
     Dosage: 90 MG, 2X/DAY, TABLET
     Route: 048
     Dates: start: 20211019
  9. PEGASPARGASE [Suspect]
     Active Substance: PEGASPARGASE
     Indication: Acute lymphocytic leukaemia
     Dosage: 4425 IU, AS DIRECTED
     Route: 042
     Dates: start: 20211102
  10. DEXAMETHASONE [Suspect]
     Active Substance: DEXAMETHASONE
     Indication: Acute lymphocytic leukaemia
     Dosage: 9 MG, 2X/DAY, TABLET
     Route: 048
     Dates: start: 20220315, end: 20220329
  11. DEXAMETHASONE [Suspect]
     Active Substance: DEXAMETHASONE
     Dosage: 9 MG, 2X/DAY, TABLET
     Route: 048
     Dates: start: 20220405
  12. CYCLOPHOSPHAMIDE [Suspect]
     Active Substance: CYCLOPHOSPHAMIDE
     Indication: Acute lymphocytic leukaemia
     Dosage: 1770 MG, AS DIRECTED
     Route: 042
     Dates: start: 20211019
  13. MERCAPTOPURINE [Suspect]
     Active Substance: MERCAPTOPURINE
     Indication: Acute lymphocytic leukaemia
     Dosage: 300 MG, WEEKLY, TABLET
     Route: 048
     Dates: start: 20211019
  14. LEUCOVORIN [Suspect]
     Active Substance: LEUCOVORIN
     Indication: Acute lymphocytic leukaemia
     Dosage: 27 MG, AS DIRECTED
     Route: 042
     Dates: start: 20220107

REACTIONS (3)
  - Febrile neutropenia [Recovered/Resolved]
  - Bacteraemia [Recovered/Resolved]
  - Back pain [Recovered/Resolved with Sequelae]

NARRATIVE: CASE EVENT DATE: 20220329
